FAERS Safety Report 9668087 (Version 2)
Quarter: 2013Q4

REPORT INFORMATION
  Report Type: Spontaneous
  Country: JP (occurrence: JP)
  Receive Date: 20131104
  Receipt Date: 20131114
  Transmission Date: 20140711
  Serious: Yes (Other)
  Sender: FDA-Public Use
  Company Number: JP-PFIZER INC-2013314188

PATIENT
  Age: 51 Year
  Sex: Male
  Weight: 72.5 kg

DRUGS (8)
  1. LIPITOR [Suspect]
     Indication: HYPERCHOLESTEROLAEMIA
     Dosage: 10 MG, 1X/DAY
     Route: 048
     Dates: start: 20130918, end: 20130923
  2. CONIEL [Suspect]
     Indication: HYPERTENSION
     Dosage: 4 MG, 1X/DAY
     Route: 048
     Dates: start: 20130918, end: 20130923
  3. FLOMOX [Suspect]
     Indication: INFECTION PROPHYLAXIS
     Dosage: 100 MG, 3X/DAY
     Route: 048
     Dates: start: 20130918, end: 20130923
  4. PLAVIX [Concomitant]
     Dosage: 75 MG, DAILY
     Dates: start: 20130918
  5. BAYASPIRIN [Concomitant]
     Dosage: 100 MG, 1X/DAY
     Dates: start: 20130918
  6. PARIET [Concomitant]
     Dosage: 10 MG, DAILY
     Dates: start: 20130918
  7. RENIVACE [Concomitant]
     Dosage: 2.5 MG, DAILY
     Dates: start: 20130918, end: 20130923
  8. ARTIST [Concomitant]
     Dosage: 2.5 MG, DAILY
     Dates: start: 20130918, end: 20130923

REACTIONS (2)
  - Hepatic enzyme increased [Recovered/Resolved]
  - Pancreatic enzymes increased [Recovered/Resolved]
